FAERS Safety Report 10265752 (Version 1)
Quarter: 2014Q2

REPORT INFORMATION
  Report Type: Spontaneous
  Country: US (occurrence: US)
  Receive Date: 20140627
  Receipt Date: 20140627
  Transmission Date: 20141212
  Serious: Yes (Death, Life-Threatening, Hospitalization, Other)
  Sender: FDA-Public Use
  Company Number: US-BRISTOL-MYERS SQUIBB COMPANY-21043054

PATIENT
  Age: 54 Year
  Sex: Male
  Weight: 90.7 kg

DRUGS (1)
  1. YERVOY [Suspect]
     Indication: MALIGNANT MELANOMA
     Dates: start: 201309

REACTIONS (6)
  - Malignant neoplasm progression [Fatal]
  - Coma [Unknown]
  - Atrial fibrillation [Unknown]
  - Jaundice [Unknown]
  - Pneumothorax [Unknown]
  - Weight decreased [Unknown]
